FAERS Safety Report 4503979-2 (Version None)
Quarter: 2004Q4

REPORT INFORMATION
  Report Type: 
  Country: None (occurrence: None)
  Receive Date: 20041115
  Receipt Date: 20041108
  Transmission Date: 20050328
  Serious: Yes (Other)
  Sender: FDA-Public Use
  Company Number: 003522

PATIENT
  Age: 53 Year
  Sex: Female

DRUGS (3)
  1. MEDROXYPROGESTERONE ACETATE [Suspect]
     Dosage: ORAL
     Route: 048
     Dates: start: 19950101, end: 20001001
  2. PROVERA [Suspect]
     Dates: start: 19850101, end: 20001001
  3. PREMARIN [Suspect]
     Dates: start: 19850101, end: 20001001

REACTIONS (1)
  - BREAST CANCER [None]
